FAERS Safety Report 8867395 (Version 1)
Quarter: 2012Q4

REPORT INFORMATION
  Report Type: 
  Country: US (occurrence: US)
  Receive Date: 20121025
  Receipt Date: 20121025
  Transmission Date: 20130627
  Serious: No
  Sender: FDA-Public Use
  Company Number: US-AMGEN-USASP2012016644

PATIENT
  Sex: Female
  Weight: 98.41 kg

DRUGS (10)
  1. ENBREL [Suspect]
     Indication: PRODUCT USED FOR UNKNOWN INDICATION
     Dosage: 50 mg, qwk
     Route: 058
  2. ETODOLAC [Concomitant]
     Dosage: 300 mg, UNK
  3. OMEPRAZOLE [Concomitant]
     Dosage: 20 mg, UNK
  4. BENAZEPRIL/HCTZ [Concomitant]
  5. ASPIRIN [Concomitant]
     Dosage: 81 mg, UNK
  6. CALCIUM 600 [Concomitant]
  7. FISH OIL [Concomitant]
  8. FOLIC ACID [Concomitant]
     Dosage: 1 mg, UNK
  9. METHOTREXATE [Concomitant]
     Dosage: 2.5 mg, UNK
  10. PAXIL [Concomitant]
     Dosage: 40 mg, UNK

REACTIONS (1)
  - Injection site pain [Unknown]
